FAERS Safety Report 9396713 (Version 1)
Quarter: 2013Q3

REPORT INFORMATION
  Report Type: Spontaneous
  Country: JP (occurrence: JP)
  Receive Date: 20130712
  Receipt Date: 20130712
  Transmission Date: 20140515
  Serious: Yes (Other)
  Sender: FDA-Public Use
  Company Number: JP-JNJFOC-20130703559

PATIENT
  Age: 6 Decade
  Sex: Male

DRUGS (2)
  1. NICORETTE COOLMINT 2MG [Suspect]
     Indication: SMOKING CESSATION THERAPY
     Dosage: 2 MG GUM, 6-7 GUMS DAILY
     Route: 048
  2. NICORETTE COOLMINT 2MG [Suspect]
     Indication: SMOKING CESSATION THERAPY
     Dosage: 2 MG GUM, 50 GUMS DAILY
     Route: 048

REACTIONS (3)
  - Nicotine dependence [Not Recovered/Not Resolved]
  - Intentional drug misuse [Unknown]
  - Overdose [Unknown]
